FAERS Safety Report 5398003-6 (Version None)
Quarter: 2007Q3

REPORT INFORMATION
  Report Type: 
  Country: None (occurrence: None)
  Receive Date: 20070724
  Receipt Date: 20070719
  Transmission Date: 20080115
  Serious: No
  Sender: FDA-Public Use
  Company Number: 20073882

PATIENT
  Age: 33 Year
  Sex: Female

DRUGS (4)
  1. LIORESAL [Suspect]
     Indication: MUSCLE SPASTICITY
     Dosage: 105.11 MCG, DAILY, INTRATHECAL
     Route: 039
  2. HYDROMORPHONE HCL [Concomitant]
  3. BUPIVACAINE [Concomitant]
  4. CLONIDINE [Concomitant]

REACTIONS (2)
  - CATHETER RELATED COMPLICATION [None]
  - GRANULOMA [None]
